FAERS Safety Report 16032842 (Version 2)
Quarter: 2019Q2

REPORT INFORMATION
  Report Type: Report from Study
  Country: None (occurrence: NL)
  Receive Date: 20190305
  Receipt Date: 20190613
  Transmission Date: 20190711
  Serious: Yes (Other)
  Sender: FDA-Public Use
  Company Number: NL-ABBVIE-19S-114-2688577-00

PATIENT
  Sex: Male

DRUGS (1)
  1. DUODOPA [Suspect]
     Active Substance: CARBIDOPA\LEVODOPA
     Indication: PARKINSON^S DISEASE
     Dosage: MD: 5.0, CD: 5.5, ED: 2.7, CND: 4.7, END: 2.7 24 HOUR TREATMENT
     Route: 050
     Dates: start: 20150112

REACTIONS (12)
  - Stoma site discharge [Not Recovered/Not Resolved]
  - Pain [Recovered/Resolved]
  - Knee operation [Not Recovered/Not Resolved]
  - Bacterial infection [Not Recovered/Not Resolved]
  - Anaemia [Recovered/Resolved]
  - Feeling abnormal [Recovered/Resolved]
  - Arthralgia [Recovered/Resolved]
  - Freezing phenomenon [Recovered/Resolved]
  - Decreased appetite [Recovering/Resolving]
  - Ageusia [Recovering/Resolving]
  - Hallucination [Recovered/Resolved]
  - Inflammatory marker test [Not Recovered/Not Resolved]
